FAERS Safety Report 17224072 (Version 1)
Quarter: 2020Q1

REPORT INFORMATION
  Report Type: Spontaneous
  Country: PL (occurrence: PL)
  Receive Date: 20200102
  Receipt Date: 20200102
  Transmission Date: 20200409
  Serious: Yes (Hospitalization, Other)
  Sender: FDA-Public Use
  Company Number: PL-MYLANLABS-2019M1128966

PATIENT
  Age: 53 Year
  Sex: Female

DRUGS (7)
  1. MALTOFER                           /00023548/ [Suspect]
     Active Substance: IRON POLYMALTOSE
     Indication: VAGINAL HAEMORRHAGE
     Dosage: UNK
     Route: 048
  2. VENOFER [Suspect]
     Active Substance: IRON SUCROSE
     Indication: VAGINAL HAEMORRHAGE
     Dosage: 100 MILLIGRAM
     Route: 042
  3. MALTOFER                           /00023548/ [Suspect]
     Active Substance: IRON POLYMALTOSE
     Indication: ANAEMIA
     Dosage: UNK
  4. METFORMIN [Suspect]
     Active Substance: METFORMIN HYDROCHLORIDE
     Indication: TYPE 2 DIABETES MELLITUS
     Dosage: UNK
     Route: 065
  5. VENOFER [Suspect]
     Active Substance: IRON SUCROSE
     Indication: ANAEMIA
     Dosage: UNK
  6. FERINJECT [Suspect]
     Active Substance: FERRIC CARBOXYMALTOSE
     Indication: ANAEMIA
     Dosage: 50 MG, UNK
     Route: 042
  7. FERINJECT [Suspect]
     Active Substance: FERRIC CARBOXYMALTOSE
     Indication: VAGINAL HAEMORRHAGE
     Dosage: 50 MG, UNK
     Route: 042

REACTIONS (2)
  - Chronic kidney disease [Recovered/Resolved]
  - Respiratory tract infection [Recovering/Resolving]
